FAERS Safety Report 14022524 (Version 9)
Quarter: 2018Q2

REPORT INFORMATION
  Report Type: Report from Study
  Country: JP (occurrence: JP)
  Receive Date: 20170929
  Receipt Date: 20180625
  Transmission Date: 20180711
  Serious: Yes (Death, Hospitalization)
  Sender: FDA-Public Use
  Company Number: JP-PFIZER INC-2017130297

PATIENT
  Age: 83 Year
  Sex: Male
  Weight: 54.2 kg

DRUGS (14)
  1. RHEUMATREX [Suspect]
     Active Substance: METHOTREXATE SODIUM
     Dosage: 8 MG, WEEKLY
     Route: 048
     Dates: start: 20170524, end: 20170815
  2. PREDNISOLONE. [Suspect]
     Active Substance: PREDNISOLONE
     Dosage: 10 MG, DAILY
     Route: 048
     Dates: start: 20170510, end: 20170606
  3. XELJANZ [Suspect]
     Active Substance: TOFACITINIB CITRATE
     Indication: RHEUMATOID ARTHRITIS
     Dosage: 5 MG, 2X/DAY
     Route: 048
     Dates: start: 20170316, end: 20170317
  4. BAKTAR [Concomitant]
     Active Substance: SULFAMETHOXAZOLE\TRIMETHOPRIM
     Indication: PROPHYLAXIS
     Dosage: UNK
     Dates: start: 20161221, end: 20170913
  5. CELECOX [Concomitant]
     Active Substance: CELECOXIB
     Dosage: 400 MG, UNK
     Route: 048
  6. AMLODIPINE [Concomitant]
     Active Substance: AMLODIPINE BESYLATE
     Route: 048
  7. XELJANZ [Suspect]
     Active Substance: TOFACITINIB CITRATE
     Dosage: 5 MG, 2X/DAY
     Route: 048
     Dates: start: 20170329, end: 20170419
  8. PREDNISOLONE. [Suspect]
     Active Substance: PREDNISOLONE
     Dosage: 8 MG, DAILY
     Route: 048
     Dates: start: 20170607
  9. FOLIAMIN [Concomitant]
     Active Substance: FOLIC ACID
     Route: 048
  10. RHEUMATREX [Suspect]
     Active Substance: METHOTREXATE SODIUM
     Indication: RHEUMATOID ARTHRITIS
     Dosage: 12 MG, WEEKLY
     Route: 048
     Dates: end: 20170419
  11. NEXIUM [Concomitant]
     Active Substance: ESOMEPRAZOLE MAGNESIUM
     Route: 048
  12. XELJANZ [Suspect]
     Active Substance: TOFACITINIB CITRATE
     Dosage: 5 MG, 1X/DAY
     Route: 048
     Dates: start: 20170524, end: 20170913
  13. RHEUMATREX [Suspect]
     Active Substance: METHOTREXATE SODIUM
     Dosage: 4 MG, WEEKLY
     Route: 048
     Dates: start: 20170816, end: 20170913
  14. PREDNISOLONE. [Suspect]
     Active Substance: PREDNISOLONE
     Dosage: 6 MG, DAILY
     Route: 048
     Dates: end: 20170509

REACTIONS (4)
  - Acute myeloid leukaemia [Fatal]
  - Platelet count decreased [Unknown]
  - Gingivitis [Recovered/Resolved]
  - Organising pneumonia [Recovered/Resolved]

NARRATIVE: CASE EVENT DATE: 20170317
